FAERS Safety Report 4861166-2 (Version None)
Quarter: 2005Q4

REPORT INFORMATION
  Report Type: 
  Country: None (occurrence: None)
  Receive Date: 20051216
  Receipt Date: 20051128
  Transmission Date: 20060501
  Serious: Yes (Hospitalization)
  Sender: FDA-Public Use
  Company Number: 200510617BYL

PATIENT
  Age: 75 Year
  Sex: Male

DRUGS (8)
  1. ASPIRIN [Suspect]
     Indication: ACUTE MYOCARDIAL INFARCTION
     Dosage: 200 MG, QD, ORAL; SEE IMAGE
     Route: 048
     Dates: start: 20050926, end: 20051001
  2. ASPIRIN [Suspect]
     Indication: PROPHYLAXIS
     Dosage: 200 MG, QD, ORAL; SEE IMAGE
     Route: 048
     Dates: start: 20050926, end: 20051001
  3. ASPIRIN [Suspect]
     Indication: ACUTE MYOCARDIAL INFARCTION
     Dosage: 200 MG, QD, ORAL; SEE IMAGE
     Route: 048
     Dates: start: 20051001, end: 20051128
  4. ASPIRIN [Suspect]
     Indication: PROPHYLAXIS
     Dosage: 200 MG, QD, ORAL; SEE IMAGE
     Route: 048
     Dates: start: 20051001, end: 20051128
  5. PANALDINE [Concomitant]
  6. TANATRIL [Concomitant]
  7. PAXIL [Concomitant]
  8. ACTOS [Concomitant]

REACTIONS (1)
  - INTERSTITIAL LUNG DISEASE [None]
